FAERS Safety Report 4957387-0 (Version None)
Quarter: 2006Q1

REPORT INFORMATION
  Report Type: 
  Country: None (occurrence: None)
  Receive Date: 20060327
  Receipt Date: 20060317
  Transmission Date: 20060701
  Serious: Yes (Other)
  Sender: FDA-Public Use
  Company Number: 2002-07-2888

PATIENT
  Age: 6 Month
  Sex: Male

DRUGS (1)
  1. ELOCON [Suspect]
     Indication: ECZEMA
     Dosage: 0.1% DAILY TOP-DERM
     Route: 061
     Dates: start: 19981228, end: 20020601

REACTIONS (3)
  - GROWTH HORMONE DEFICIENCY [None]
  - INCORRECT DOSE ADMINISTERED [None]
  - OVERDOSE [None]
